FAERS Safety Report 19864388 (Version 1)
Quarter: 2021Q3

REPORT INFORMATION
  Report Type: Other
  Country: US (occurrence: US)
  Receive Date: 20210921
  Receipt Date: 20210921
  Transmission Date: 20211014
  Serious: No
  Sender: FDA-Public Use
  Company Number: US-ACORDA-ACO_169648_2021

PATIENT
  Sex: Male

DRUGS (4)
  1. AMANTADINE. [Concomitant]
     Active Substance: AMANTADINE HYDROCHLORIDE
     Indication: PRODUCT USED FOR UNKNOWN INDICATION
     Dosage: UNK
     Route: 065
  2. INBRIJA [Suspect]
     Active Substance: LEVODOPA
     Indication: PARKINSON^S DISEASE
     Dosage: 84 MILLIGRAM, PRN, NOT TO EXCEED 5 DOSES A DAY
     Dates: start: 20210409
  3. INBRIJA [Suspect]
     Active Substance: LEVODOPA
     Indication: ON AND OFF PHENOMENON
  4. CARBIDOPA/LEVODOPA [Concomitant]
     Active Substance: CARBIDOPA\LEVODOPA
     Indication: PRODUCT USED FOR UNKNOWN INDICATION
     Dosage: 25?100MG (CAN TAKE AN EXTRA TWO) PER DAY IF NEEDED
     Route: 065

REACTIONS (8)
  - Product intolerance [Unknown]
  - Device use issue [Unknown]
  - Device occlusion [Unknown]
  - Cough [Unknown]
  - Disease progression [Unknown]
  - Wrong technique in product usage process [Unknown]
  - Parkinson^s disease [Unknown]
  - Device issue [Unknown]
